FAERS Safety Report 7629678-6 (Version None)
Quarter: 2011Q3

REPORT INFORMATION
  Report Type: 
  Country: None (occurrence: None)
  Receive Date: 20110722
  Receipt Date: 20100810
  Transmission Date: 20111222
  Serious: No
  Sender: FDA-Public Use
  Company Number: US-PFIZER INC-US-WYE-H17249710

PATIENT
  Sex: Female
  Weight: 63.6 kg

DRUGS (6)
  1. MELOXICAM [Suspect]
     Dosage: 15 UNK, 1X/DAY
     Route: 048
     Dates: start: 20100318
  2. HYDROXYCHLOROQUINE SULFATE [Suspect]
     Dosage: 400 MG, 1X/DAY
     Route: 048
     Dates: start: 20000801
  3. SULFASALAZINE [Suspect]
     Dosage: 1500 MG, 1X/DAY
     Route: 048
     Dates: start: 20091006
  4. FISH OIL [Concomitant]
     Dosage: UNK
     Route: 048
     Dates: start: 20060822
  5. ENBREL [Suspect]
     Indication: RHEUMATOID ARTHRITIS
     Dosage: 25 MG, 2X/WEEK
     Route: 058
     Dates: start: 20080101
  6. FOLIC ACID [Concomitant]
     Dosage: UNK
     Route: 048
     Dates: start: 20071105

REACTIONS (3)
  - RASH PAPULAR [None]
  - RASH PRURITIC [None]
  - RASH MACULAR [None]
